FAERS Safety Report 14886021 (Version 2)
Quarter: 2019Q2

REPORT INFORMATION
  Report Type: Spontaneous
  Country: US (occurrence: US)
  Receive Date: 20180512
  Receipt Date: 20190409
  Transmission Date: 20190711
  Serious: Yes (Hospitalization, Other)
  Sender: FDA-Public Use
  Company Number: US-SA-2018SA133723

PATIENT
  Age: 45 Year
  Sex: Female
  Weight: 60.32 kg

DRUGS (14)
  1. PANTOPRAZOLE SODIUM. [Concomitant]
     Active Substance: PANTOPRAZOLE SODIUM
  2. ACIPHEX [Concomitant]
     Active Substance: RABEPRAZOLE SODIUM
  3. AUBAGIO [Suspect]
     Active Substance: TERIFLUNOMIDE
     Indication: MULTIPLE SCLEROSIS
     Dosage: 14 MG,QD
     Route: 048
     Dates: start: 20180315
  4. VITAMIN D3 [Concomitant]
     Active Substance: CHOLECALCIFEROL
  5. VITAMIN B12 [Concomitant]
     Active Substance: CYANOCOBALAMIN
  6. CLOBETASOL [Concomitant]
     Active Substance: CLOBETASOL
  7. BACLOFEN. [Concomitant]
     Active Substance: BACLOFEN
  8. TYLENOL [Concomitant]
     Active Substance: ACETAMINOPHEN
  9. CLARITIN-D NOS [Concomitant]
     Active Substance: LORATADINE\PSEUDOEPHEDRINE SULFATE
  10. RANITIDINE HCL [Concomitant]
     Active Substance: RANITIDINE HYDROCHLORIDE
  11. CLARITIN [CLARITHROMYCIN] [Concomitant]
     Active Substance: CLARITHROMYCIN
  12. IRON [Concomitant]
     Active Substance: IRON
  13. METHOTREXATE. [Concomitant]
     Active Substance: METHOTREXATE
  14. MELOXICAM. [Concomitant]
     Active Substance: MELOXICAM

REACTIONS (6)
  - Cough [Unknown]
  - Hysterectomy [Unknown]
  - Pulmonary congestion [Unknown]
  - Pyrexia [Unknown]
  - Paranasal sinus discomfort [Unknown]
  - Nasal congestion [Unknown]
